FAERS Safety Report 11048258 (Version 1)
Quarter: 2015Q2

REPORT INFORMATION
  Report Type: Spontaneous
  Country: US (occurrence: None)
  Receive Date: 20150417
  Receipt Date: 20150417
  Transmission Date: 20150821
  Serious: No
  Sender: FDA-Public Use
  Company Number: None

PATIENT
  Age: 41 Year
  Sex: Female

DRUGS (1)
  1. STELARA [Suspect]
     Active Substance: USTEKINUMAB
     Indication: PSORIASIS
     Dosage: Q12 WEEKS
     Route: 058
     Dates: start: 20150307

REACTIONS (2)
  - Drug ineffective [None]
  - Psoriasis [None]

NARRATIVE: CASE EVENT DATE: 201503
